FAERS Safety Report 10707896 (Version 2)
Quarter: 2015Q1

REPORT INFORMATION
  Report Type: Spontaneous
  Country: US (occurrence: US)
  Receive Date: 20150113
  Receipt Date: 20150115
  Transmission Date: 20150721
  Serious: No
  Sender: FDA-Public Use
  Company Number: US-TEVA-530867USA

PATIENT
  Age: 70 Year
  Sex: Male

DRUGS (1)
  1. NUVIGIL [Suspect]
     Active Substance: ARMODAFINIL
     Indication: SLEEP APNOEA SYNDROME

REACTIONS (5)
  - Tic [Unknown]
  - Adverse event [Unknown]
  - Feeling jittery [Unknown]
  - Abnormal behaviour [Unknown]
  - Tremor [Unknown]
